FAERS Safety Report 5239122-4 (Version None)
Quarter: 2007Q1

REPORT INFORMATION
  Report Type: 
  Country: None (occurrence: None)
  Receive Date: 20061208
  Receipt Date: 20050526
  Transmission Date: 20070707
  Serious: Yes (Other)
  Sender: FDA-Public Use
  Company Number: 2005UW07326

PATIENT
  Age: 64 Year
  Sex: Female
  Weight: 73.0291 kg

DRUGS (6)
  1. CRESTOR [Suspect]
     Indication: BLOOD CHOLESTEROL INCREASED
     Dosage: 10 MG QD PO
     Route: 048
     Dates: start: 20040809, end: 20050428
  2. VIVELLE [Concomitant]
  3. COREG [Concomitant]
  4. DIOVAN HCT [Concomitant]
  5. ECOTRIN [Concomitant]
  6. LEVOTHYROXINE SODIUM [Concomitant]

REACTIONS (5)
  - BACK PAIN [None]
  - DYSPHAGIA [None]
  - DYSPNOEA [None]
  - PAIN IN EXTREMITY [None]
  - RASH [None]
